FAERS Safety Report 6984323-8 (Version None)
Quarter: 2010Q3

REPORT INFORMATION
  Report Type: 
  Country: None (occurrence: None)
  Receive Date: 20100915
  Receipt Date: 20100902
  Transmission Date: 20110219
  Serious: Yes (Hospitalization, Other)
  Sender: FDA-Public Use
  Company Number: PHHY2010DE07356

PATIENT
  Sex: Male

DRUGS (2)
  1. AREDIA [Suspect]
     Indication: OSTEOLYSIS
     Dosage: UNK
     Route: 042
     Dates: start: 20090801, end: 20100102
  2. COTRIM [Concomitant]
     Indication: INFECTION PROPHYLAXIS
     Dosage: 1X/WEEK
     Dates: start: 20100102

REACTIONS (2)
  - RENAL FAILURE [None]
  - STEM CELL TRANSPLANT [None]
